FAERS Safety Report 7732204-4 (Version None)
Quarter: 2011Q3

REPORT INFORMATION
  Report Type: 
  Country: None (occurrence: None)
  Receive Date: 20110906
  Receipt Date: 20110817
  Transmission Date: 20111222
  Serious: No
  Sender: FDA-Public Use
  Company Number: US-AMGEN-USASP2011041967

PATIENT
  Age: 58 Year
  Sex: Female

DRUGS (11)
  1. MIACALCIN [Concomitant]
     Dosage: UNK
  2. LISINOPRIL [Concomitant]
     Dosage: UNK
  3. CALCIUM CARBONATE [Concomitant]
     Dosage: UNK
  4. FLUDROCORTISON [Concomitant]
     Dosage: UNK
  5. HYDROCORT                          /00028602/ [Concomitant]
     Dosage: UNK
  6. VITAMIN D [Concomitant]
     Dosage: UNK
  7. XANAX [Concomitant]
     Dosage: UNK
  8. EVISTA [Concomitant]
     Dosage: UNK
  9. PROLIA [Suspect]
     Indication: OSTEOPOROSIS POSTMENOPAUSAL
     Dosage: 60 MG, Q6MO
     Dates: start: 20110401
  10. SYNTHROID [Concomitant]
     Dosage: UNK
  11. REGLAN [Concomitant]
     Dosage: UNK

REACTIONS (3)
  - FUNGAL INFECTION [None]
  - WEIGHT DECREASED [None]
  - PAIN [None]
